FAERS Safety Report 9535637 (Version 1)
Quarter: 2013Q3

REPORT INFORMATION
  Report Type: Spontaneous
  Country: US (occurrence: US)
  Receive Date: 20130919
  Receipt Date: 20130919
  Transmission Date: 20140515
  Serious: No
  Sender: FDA-Public Use
  Company Number: US-BIOGENIDEC-2013BI085732

PATIENT
  Age: 33 Year
  Sex: Female

DRUGS (1)
  1. TYSABRI [Suspect]
     Indication: MULTIPLE SCLEROSIS
     Route: 042
     Dates: start: 20130718

REACTIONS (8)
  - Diarrhoea [Unknown]
  - Aphagia [Unknown]
  - Lacrimation increased [Unknown]
  - Photophobia [Unknown]
  - Abdominal pain upper [Unknown]
  - Optic neuritis [Unknown]
  - Vision blurred [Unknown]
  - Gastroenteritis viral [Unknown]
